FAERS Safety Report 5676116-9 (Version None)
Quarter: 2008Q1

REPORT INFORMATION
  Report Type: 
  Country: None (occurrence: None)
  Receive Date: 20080321
  Receipt Date: 20080314
  Transmission Date: 20080703
  Serious: Yes (Hospitalization)
  Sender: FDA-Public Use
  Company Number: CH-ROCHE-553575

PATIENT
  Age: 98 Year
  Sex: Female

DRUGS (9)
  1. TOREM [Suspect]
     Indication: DRUG USE FOR UNKNOWN INDICATION
     Route: 048
     Dates: end: 20070625
  2. TOREM [Suspect]
     Route: 048
  3. DIGOXIN STREULI [Suspect]
     Indication: DRUG USE FOR UNKNOWN INDICATION
     Route: 065
  4. ENATEC [Suspect]
     Indication: DRUG USE FOR UNKNOWN INDICATION
     Route: 048
  5. ENATEC [Suspect]
     Dosage: DOSAGE REDUCED.
     Route: 048
  6. PLAVIX [Concomitant]
     Dosage: FORM: FILM COATED TABLETS
     Route: 048
  7. DILATREND [Concomitant]
     Route: 048
  8. CORVATON [Concomitant]
     Route: 048
  9. ELTROXIN [Concomitant]
     Route: 050

REACTIONS (4)
  - ASTHENIA [None]
  - DRUG TOXICITY [None]
  - NAUSEA [None]
  - RENAL FAILURE [None]
